FAERS Safety Report 17445490 (Version 2)
Quarter: 2020Q2

REPORT INFORMATION
  Report Type: Report from Study
  Country: PL (occurrence: PL)
  Receive Date: 20200221
  Receipt Date: 20200407
  Transmission Date: 20200713
  Serious: Yes (Hospitalization, Other)
  Sender: FDA-Public Use
  Company Number: NVSC2020PL042856

PATIENT
  Age: 82 Year
  Sex: Female

DRUGS (1)
  1. NILOTINIB [Suspect]
     Active Substance: NILOTINIB
     Indication: PRODUCT USED FOR UNKNOWN INDICATION
     Dosage: UNK
     Route: 065

REACTIONS (10)
  - General physical health deterioration [Recovering/Resolving]
  - Mood altered [Unknown]
  - Atrial fibrillation [Recovering/Resolving]
  - Neurological examination abnormal [Recovering/Resolving]
  - Palpitations [Recovering/Resolving]
  - Dyspnoea [Recovering/Resolving]
  - Cardiopulmonary failure [Recovering/Resolving]
  - Chest pain [Recovering/Resolving]
  - Blood pressure increased [Recovering/Resolving]
  - Mental disorder [Unknown]

NARRATIVE: CASE EVENT DATE: 20200120
